FAERS Safety Report 7662608-X (Version None)
Quarter: 2011Q3

REPORT INFORMATION
  Report Type: 
  Country: None (occurrence: None)
  Receive Date: 20110805
  Receipt Date: 20100913
  Transmission Date: 20111222
  Serious: No
  Sender: FDA-Public Use
  Company Number: US-ABBOTT-10P-163-0670416-00

PATIENT
  Sex: Female

DRUGS (2)
  1. NIASPAN [Suspect]
     Indication: HIGH DENSITY LIPOPROTEIN DECREASED
     Dosage: AT BEDTIME
     Dates: start: 20100906, end: 20100907
  2. SYNTHROID [Concomitant]
     Indication: PRODUCT USED FOR UNKNOWN INDICATION

REACTIONS (2)
  - ADVERSE REACTION [None]
  - FEELING HOT [None]
